FAERS Safety Report 7214925-5 (Version None)
Quarter: 2011Q1

REPORT INFORMATION
  Report Type: 
  Country: None (occurrence: None)
  Receive Date: 20110107
  Receipt Date: 20100517
  Transmission Date: 20110831
  Serious: No
  Sender: FDA-Public Use
  Company Number: A0860008A

PATIENT
  Age: 64 Year
  Sex: Male

DRUGS (4)
  1. CHLORAMPHENICOL [Concomitant]
  2. LOVAZA [Suspect]
     Dosage: 1CAP PER DAY
     Route: 048
  3. DIOVAN [Concomitant]
  4. AVODART [Concomitant]

REACTIONS (4)
  - THERAPEUTIC RESPONSE UNEXPECTED [None]
  - ERUCTATION [None]
  - DYSPEPSIA [None]
  - PANCREATIC ENZYMES INCREASED [None]
